FAERS Safety Report 6370117-3 (Version None)
Quarter: 2009Q3

REPORT INFORMATION
  Report Type: 
  Country: None (occurrence: None)
  Receive Date: 20090923
  Receipt Date: 20070430
  Transmission Date: 20100115
  Serious: Yes (Hospitalization)
  Sender: FDA-Public Use
  Company Number: US-ASTRAZENECA-2006UW20845

PATIENT
  Age: 18781 Day
  Sex: Male
  Weight: 102.1 kg

DRUGS (20)
  1. SEROQUEL [Suspect]
     Indication: SCHIZOPHRENIA
     Route: 048
     Dates: start: 20000105
  2. SEROQUEL [Suspect]
     Indication: BIPOLAR DISORDER
     Route: 048
     Dates: start: 20000105
  3. SEROQUEL [Suspect]
     Indication: DEPRESSION
     Route: 048
     Dates: start: 20000105
  4. GEODON [Concomitant]
     Dates: start: 20040101, end: 20060101
  5. HALDOL [Concomitant]
  6. ZYPREXA/SYMBYAX [Concomitant]
     Route: 065
  7. WELLBUTRIN [Concomitant]
     Route: 048
  8. LITHIUM [Concomitant]
     Dosage: 30 - 300 MG
     Route: 065
  9. VICODIN [Concomitant]
     Route: 048
  10. FLUOXETINE [Concomitant]
     Route: 065
  11. GUAIFENESIN [Concomitant]
     Route: 065
  12. PRILOSEC [Concomitant]
     Route: 065
  13. CELEXA [Concomitant]
     Route: 065
  14. PREVACID [Concomitant]
     Route: 065
  15. KLOR-CON [Concomitant]
     Route: 065
  16. BACLOFEN [Concomitant]
     Route: 065
  17. SPORANOX [Concomitant]
     Route: 065
  18. EFFEXOR [Concomitant]
     Route: 065
  19. SERZONE [Concomitant]
     Route: 065
  20. COGENTIN [Concomitant]
     Route: 065

REACTIONS (1)
  - DIABETES MELLITUS [None]
